FAERS Safety Report 5192826-4 (Version None)
Quarter: 2006Q4

REPORT INFORMATION
  Report Type: 
  Country: None (occurrence: None)
  Receive Date: 20061228
  Receipt Date: 20051122
  Transmission Date: 20070319
  Serious: No
  Sender: FDA-Public Use
  Company Number: US-GLAXOSMITHKLINE-A0583450A

PATIENT
  Age: 74 Year
  Sex: Male

DRUGS (3)
  1. FLONASE [Suspect]
     Dosage: 50MCG TWICE PER DAY
     Route: 045
     Dates: end: 20050501
  2. PREDNISONE TAB [Concomitant]
  3. NASAREL [Concomitant]

REACTIONS (1)
  - RASH [None]
